FAERS Safety Report 6094696-9 (Version None)
Quarter: 2009Q1

REPORT INFORMATION
  Report Type: 
  Country: None (occurrence: None)
  Receive Date: 20090224
  Receipt Date: 20090212
  Transmission Date: 20090719
  Serious: Yes (Hospitalization, Other)
  Sender: FDA-Public Use
  Company Number: 1000003970

PATIENT
  Age: 76 Year
  Sex: Male
  Weight: 61 kg

DRUGS (9)
  1. MEMANTINE HCL [Suspect]
     Indication: DEMENTIA ALZHEIMER'S TYPE
     Dosage: 20 MG (20 MG, 1 IN 1 D), ORAL
     Route: 048
     Dates: start: 20070123, end: 20070219
  2. SOLIFENACIN SUCCINATE [Concomitant]
  3. NAFTOPIDIL [Concomitant]
  4. DONEPEZIL HYDROCHLORIDE [Concomitant]
  5. CANDESARTAN CILEXETIL [Concomitant]
  6. KETOPROFEN [Concomitant]
  7. DIPYRIDAMOLE [Concomitant]
  8. AZULENE [Concomitant]
  9. PIRENOXINE [Concomitant]

REACTIONS (1)
  - PROSTATE CANCER [None]
